FAERS Safety Report 19362821 (Version 1)
Quarter: 2021Q2

REPORT INFORMATION
  Report Type: Spontaneous
  Country: US (occurrence: US)
  Receive Date: 20210603
  Receipt Date: 20210603
  Transmission Date: 20210717
  Serious: Yes (Other)
  Sender: FDA-Public Use
  Company Number: US-TEVA-2021-US-1917512

PATIENT
  Age: 9 Year
  Sex: Female

DRUGS (1)
  1. HYDROXYCARBAMIDE [Suspect]
     Active Substance: HYDROXYUREA
     Indication: SICKLE CELL DISEASE
     Dosage: STARTED RECEIVING SINCE THE AGE OF 5 YEARS
     Route: 065

REACTIONS (4)
  - Fungaemia [Unknown]
  - Haemophagocytic lymphohistiocytosis [Unknown]
  - Bacteraemia [Unknown]
  - Acute myeloid leukaemia [Recovering/Resolving]
